FAERS Safety Report 12687375 (Version 1)
Quarter: 2016Q3

REPORT INFORMATION
  Report Type: Report from Study
  Country: US (occurrence: US)
  Receive Date: 20160826
  Receipt Date: 20160826
  Transmission Date: 20161109
  Serious: Yes (Other)
  Sender: FDA-Public Use
  Company Number: US-AMGEN-USASL2016108491

PATIENT
  Age: 66 Year
  Sex: Female

DRUGS (4)
  1. ENBREL [Suspect]
     Active Substance: ETANERCEPT
     Dosage: 50 MG, QWK
     Route: 065
  2. ENBREL [Suspect]
     Active Substance: ETANERCEPT
     Indication: PSORIATIC ARTHROPATHY
     Dosage: 50 MG, QWK
     Route: 065
     Dates: start: 1998
  3. ENBREL [Suspect]
     Active Substance: ETANERCEPT
     Dosage: 50 MG, QWK
     Route: 065
  4. ENBREL [Suspect]
     Active Substance: ETANERCEPT
     Dosage: 25 MG, 2 TIMES/WK (ON THE SAME DAY)
     Route: 065

REACTIONS (16)
  - Malaise [Unknown]
  - Injection site bruising [Not Recovered/Not Resolved]
  - Snoring [Unknown]
  - Sinusitis [Unknown]
  - Intentional product misuse [Unknown]
  - Immune system disorder [Unknown]
  - Fatigue [Unknown]
  - Nasopharyngitis [Unknown]
  - Injection site pain [Unknown]
  - Autoimmune thyroiditis [Unknown]
  - Pyrexia [Unknown]
  - Drug dose omission [Unknown]
  - Infection [Unknown]
  - Eye infection [Unknown]
  - Tooth disorder [Recovered/Resolved]
  - Influenza [Unknown]

NARRATIVE: CASE EVENT DATE: 201607
